FAERS Safety Report 6834545-1 (Version None)
Quarter: 2010Q3

REPORT INFORMATION
  Report Type: 
  Country: None (occurrence: None)
  Receive Date: 20100712
  Receipt Date: 20070710
  Transmission Date: 20110219
  Serious: No
  Sender: FDA-Public Use
  Company Number: US-PFIZER INC-2007034092

PATIENT
  Sex: Female
  Weight: 60.8 kg

DRUGS (6)
  1. CHANTIX [Suspect]
     Indication: SMOKING CESSATION THERAPY
     Dates: start: 20070216, end: 20070301
  2. SPORANOX [Interacting]
     Indication: HISTOPLASMOSIS
     Route: 048
     Dates: start: 20070201
  3. MUSCLE RELAXANTS [Concomitant]
     Indication: ARTHRITIS
  4. ANALGESICS [Concomitant]
     Indication: ARTHRITIS
  5. DECONGESTANT [Concomitant]
     Indication: CHRONIC SINUSITIS
  6. ANTIHISTAMINES [Concomitant]
     Indication: CHRONIC SINUSITIS

REACTIONS (5)
  - ABDOMINAL PAIN [None]
  - DRUG INTERACTION [None]
  - DRUG WITHDRAWAL SYNDROME [None]
  - HEADACHE [None]
  - NAUSEA [None]
